FAERS Safety Report 19433503 (Version 7)
Quarter: 2023Q2

REPORT INFORMATION
  Report Type: Spontaneous
  Country: IN (occurrence: IN)
  Receive Date: 20210617
  Receipt Date: 20230628
  Transmission Date: 20230721
  Serious: Yes (Other)
  Sender: FDA-Public Use
  Company Number: IN-PFIZER INC-2020388947

PATIENT
  Age: 38 Year
  Sex: Male

DRUGS (16)
  1. CRIZOTINIB [Suspect]
     Active Substance: CRIZOTINIB
     Indication: Lung neoplasm malignant
     Dosage: 250 MG, 2X/DAY
     Route: 048
     Dates: start: 20181226, end: 20200307
  2. CRIZOTINIB [Suspect]
     Active Substance: CRIZOTINIB
     Dosage: 250 MG, 1X/DAY
     Route: 048
  3. CRIZOTINIB [Suspect]
     Active Substance: CRIZOTINIB
     Dosage: 250 MG, 2X/DAY
     Route: 048
  4. CRIZOTINIB [Suspect]
     Active Substance: CRIZOTINIB
     Dosage: 250 MG, CYCLIC (TWICE DAILY, CYCLE 4)
     Route: 048
     Dates: start: 20200520, end: 20200723
  5. CRIZOTINIB [Suspect]
     Active Substance: CRIZOTINIB
     Dosage: 250 MG, 2X/DAY (250MG BD)
     Route: 048
     Dates: start: 202008
  6. BENADRYL [Concomitant]
     Active Substance: DIPHENHYDRAMINE HYDROCHLORIDE
     Dosage: 2 DF, 2X/DAY (2 TSP BD)
  7. DEXORANGE [CYANOCOBALAMIN;FERRIC AMMONIUM CITRATE;FOLIC ACID] [Concomitant]
     Dosage: 2 DF, DAILY (2 TSP, DAILY)
  8. RAPITUS LS [Concomitant]
     Dosage: 2 TSP SOS/TDS
  9. CALCIUM\CHOLECALCIFEROL [Concomitant]
     Active Substance: CALCIUM\CHOLECALCIFEROL
     Dosage: UNK, 1X/DAY
  10. CALCIROL [COLECALCIFEROL] [Concomitant]
     Dosage: 60000 IU, WEEKLY (FOR 8 WEEKS)
  11. CALCIROL [COLECALCIFEROL] [Concomitant]
     Dosage: 60000 IU, MONTHLY (FOR 6 MONTHS)
  12. DOMPERIDONE\RABEPRAZOLE [Concomitant]
     Active Substance: DOMPERIDONE\RABEPRAZOLE
     Dosage: 1 OB BBF
  13. MUCAINE [ALUMINIUM HYDROXIDE GEL;MAGNESIUM HYDROXIDE;OXETACAINE] [Concomitant]
     Indication: Dyspepsia
     Dosage: 2 DF (2 TSP SOS)
  14. PROTINEX [Concomitant]
     Dosage: 2 DF (2 TSP, TDS WITH MILK)
  15. CARBOPLATIN [Concomitant]
     Active Substance: CARBOPLATIN
     Dosage: UNK
     Dates: start: 20200525, end: 20200723
  16. PEMETREXED [Concomitant]
     Active Substance: PEMETREXED
     Dosage: UNK
     Dates: start: 20200525, end: 20200723

REACTIONS (6)
  - Renal impairment [Unknown]
  - Pleural thickening [Unknown]
  - Neoplasm progression [Unknown]
  - Oedema peripheral [Unknown]
  - Dyspnoea [Unknown]
  - Malaise [Unknown]
